FAERS Safety Report 9014131 (Version 1)
Quarter: 2013Q1

REPORT INFORMATION
  Report Type: Spontaneous
  Country: TW (occurrence: TW)
  Receive Date: 20130115
  Receipt Date: 20130115
  Transmission Date: 20140127
  Serious: Yes (Death, Hospitalization, Other)
  Sender: FDA-Public Use
  Company Number: TW-ABBOTT-13P-153-1035141-00

PATIENT
  Sex: Female
  Weight: 43 kg

DRUGS (1)
  1. HUMIRA [Suspect]
     Indication: RHEUMATOID ARTHRITIS
     Route: 058
     Dates: start: 20080418, end: 20120106

REACTIONS (5)
  - Abdominal pain [Fatal]
  - Septic shock [Fatal]
  - Pneumonia bacterial [Fatal]
  - Arthralgia [Unknown]
  - Arthralgia [Unknown]
